FAERS Safety Report 4765573-8 (Version None)
Quarter: 2005Q3

REPORT INFORMATION
  Report Type: 
  Country: None (occurrence: None)
  Receive Date: 20050906
  Receipt Date: 20050823
  Transmission Date: 20060218
  Serious: Yes (Hospitalization)
  Sender: FDA-Public Use
  Company Number: 2005118897

PATIENT
  Age: 66 Year
  Sex: Male

DRUGS (4)
  1. DIFLUCAN [Suspect]
     Indication: ILL-DEFINED DISORDER
     Dosage: 50 MG (50 MG,1 IN 1 D), ORAL
     Route: 048
     Dates: start: 20040807, end: 20040811
  2. NAXOGIN (NIMORAZOLE) [Suspect]
     Indication: GLOTTIS CARCINOMA
     Dosage: 2500 MG (500 MG, UNKNOWN), ORAL
     Route: 048
     Dates: start: 20040716, end: 20040823
  3. MARCUMAR [Suspect]
     Indication: ILL-DEFINED DISORDER
     Dosage: UNK (1.5 MG, 6 IN 1 WK), ORAL
     Route: 048
  4. ACETAMINOPHEN [Concomitant]

REACTIONS (6)
  - DRUG INTERACTION [None]
  - HAEMATURIA [None]
  - HAEMOPTYSIS [None]
  - HAEMORRHAGE [None]
  - INTERNATIONAL NORMALISED RATIO INCREASED [None]
  - ORAL INTAKE REDUCED [None]
